FAERS Safety Report 5807252-1 (Version None)
Quarter: 2008Q3

REPORT INFORMATION
  Report Type: 
  Country: None (occurrence: None)
  Receive Date: 20080709
  Receipt Date: 20080709
  Transmission Date: 20090109
  Serious: No
  Sender: FDA-Public Use
  Company Number: None

PATIENT
  Age: 54 Year
  Sex: Female
  Weight: 122.4712 kg

DRUGS (19)
  1. LEVAQUIN [Suspect]
     Indication: SINUSITIS
     Dates: start: 20070907, end: 20071002
  2. ADVAIR DISKUS 100/50 [Concomitant]
  3. ALBUTEROL [Concomitant]
  4. FLONASE [Concomitant]
  5. SINGULAIR [Concomitant]
  6. ALLEGRA [Concomitant]
  7. PREVACID [Concomitant]
  8. VIVELLE [Concomitant]
  9. GLUCOPHAGE [Concomitant]
  10. LIDOCAINE/PRILOCAINE CREAM [Concomitant]
  11. FLUCONAZOLE [Concomitant]
  12. RETIN-A [Concomitant]
  13. CLEOCIN [Concomitant]
  14. NYSTATIN [Concomitant]
  15. CELEBREX [Concomitant]
  16. AMBIEN [Concomitant]
  17. ZANAFLEX [Concomitant]
  18. ULTRAM ER [Concomitant]
  19. PERCOCET [Concomitant]

REACTIONS (3)
  - DYSSTASIA [None]
  - ROTATOR CUFF SYNDROME [None]
  - TENDONITIS [None]
